FAERS Safety Report 10164570 (Version 2)
Quarter: 2014Q2

REPORT INFORMATION
  Report Type: Spontaneous
  Country: US (occurrence: US)
  Receive Date: 20140510
  Receipt Date: 20140510
  Transmission Date: 20141212
  Serious: No
  Sender: FDA-Public Use
  Company Number: US-BRISTOL-MYERS SQUIBB COMPANY-19554377

PATIENT
  Age: 59 Year
  Sex: Male

DRUGS (1)
  1. BYDUREON [Suspect]
     Indication: TYPE 2 DIABETES MELLITUS
     Route: 058
     Dates: start: 2012

REACTIONS (7)
  - Drug dose omission [Recovered/Resolved]
  - Product quality issue [Recovered/Resolved]
  - Injection site pain [Recovered/Resolved]
  - Injection site haemorrhage [Recovered/Resolved]
  - Underdose [Unknown]
  - Weight decreased [Unknown]
  - Injection site extravasation [Recovered/Resolved]
